FAERS Safety Report 16962743 (Version 2)
Quarter: 2020Q1

REPORT INFORMATION
  Report Type: Spontaneous
  Country: NL (occurrence: NL)
  Receive Date: 20191025
  Receipt Date: 20200124
  Transmission Date: 20200409
  Serious: Yes (Life-Threatening, Hospitalization, Other)
  Sender: FDA-Public Use
  Company Number: NVSC2019NL015483

PATIENT
  Age: 2 Year
  Sex: Male

DRUGS (7)
  1. HYDROCHLOROTHIAZIDE. [Interacting]
     Active Substance: HYDROCHLOROTHIAZIDE
     Indication: FLUID RETENTION
     Dosage: 1 MG/KG, QD (CUMULATIVE DOSE TO FIRST REACTION: 13 MG/KG)
     Route: 065
  2. DIAZOXIDE [Interacting]
     Active Substance: DIAZOXIDE
     Indication: HYPERINSULINISM
     Dosage: 10 MG/KG, Q24H
     Route: 048
  3. DIAZOXIDE [Interacting]
     Active Substance: DIAZOXIDE
     Indication: HYPOGLYCAEMIA
     Dosage: 5 MG/KG, Q24H (CUMULATIVE DOSE TO FIRST REACTION: 65 MG/KG)
     Route: 048
  4. DIAZOXIDE [Interacting]
     Active Substance: DIAZOXIDE
     Indication: HYPERINSULINAEMIA
     Dosage: 10 MG/KG/DAY (CUMULATIVE DOSE 65 MG/KG )
     Route: 048
  5. KEPPRA [Concomitant]
     Active Substance: LEVETIRACETAM
     Indication: PRODUCT USED FOR UNKNOWN INDICATION
     Dosage: UNK
     Route: 048
  6. HYDROCHLOROTHIAZIDE. [Suspect]
     Active Substance: HYDROCHLOROTHIAZIDE
     Indication: HYPERINSULINISM
     Dosage: 2 MG/KG, Q24H (CUMULATIVE DOSE TO FIRST REACTION: 13 MG/KG)
     Route: 048
  7. HYDROCHLOROTHIAZIDE. [Interacting]
     Active Substance: HYDROCHLOROTHIAZIDE
     Indication: HYPOGLYCAEMIA
     Dosage: 3 MG/KG, QD (CUMULATIVE DOSE TO FIRST REACTION: 13 MG/KG)
     Route: 048

REACTIONS (7)
  - Haematemesis [Unknown]
  - Product use in unapproved indication [Unknown]
  - Rectal haemorrhage [Unknown]
  - Drug interaction [Recovered/Resolved]
  - Epistaxis [Unknown]
  - Thrombocytopenia [Recovered/Resolved]
  - Petechiae [Unknown]

NARRATIVE: CASE EVENT DATE: 20160705
